FAERS Safety Report 9068615 (Version 1)
Quarter: 2013Q1

REPORT INFORMATION
  Report Type: Spontaneous
  Country: US (occurrence: None)
  Receive Date: 20130212
  Receipt Date: 20130212
  Transmission Date: 20140127
  Serious: Yes (Death, Hospitalization)
  Sender: FDA-Public Use
  Company Number: None

PATIENT
  Age: 86 Year
  Sex: Male
  Weight: 83.92 kg

DRUGS (2)
  1. AMIODARONE [Suspect]
     Indication: VENTRICULAR EXTRASYSTOLES
     Dates: start: 20110120, end: 20120228
  2. AMIODARONE [Suspect]
     Indication: ATRIAL FIBRILLATION
     Dates: start: 20110120, end: 20120228

REACTIONS (1)
  - Pulmonary toxicity [None]
